FAERS Safety Report 10460363 (Version 1)
Quarter: 2014Q3

REPORT INFORMATION
  Report Type: Report from Study
  Country: CI (occurrence: CI)
  Receive Date: 20140917
  Receipt Date: 20140917
  Transmission Date: 20150326
  Serious: Yes (Other)
  Sender: FDA-Public Use
  Company Number: CI-GILEAD-2014-0114750

PATIENT
  Age: 36 Year
  Sex: Female
  Weight: 54 kg

DRUGS (9)
  1. LAMIVUDINE. [Suspect]
     Active Substance: LAMIVUDINE
     Dosage: 300 UNKNOWN, QD
     Route: 065
     Dates: start: 201407
  2. ISONIAZID. [Concomitant]
     Active Substance: ISONIAZID
     Indication: ANTIBIOTIC PROPHYLAXIS
     Dosage: UNK
     Dates: start: 20101028, end: 20110214
  3. COTRIMOXAZOLE [Concomitant]
     Active Substance: SULFAMETHOXAZOLE\TRIMETHOPRIM
     Indication: CYTOMEGALOVIRUS INFECTION
     Dosage: UNK
     Dates: start: 20100831, end: 20110602
  4. TENOFOVIR DISOPROXIL FUMARATE [Suspect]
     Active Substance: TENOFOVIR DISOPROXIL FUMARATE
     Dosage: 300 UNKNOWN, QD
     Route: 065
     Dates: start: 20100831
  5. EMTRICITABINE [Suspect]
     Active Substance: EMTRICITABINE
     Indication: HIV INFECTION
     Dosage: 200 UNKNOWN, QD
     Route: 065
     Dates: start: 20100831, end: 20131202
  6. TENOFOVIR DISOPROXIL FUMARATE [Suspect]
     Active Substance: TENOFOVIR DISOPROXIL FUMARATE
     Indication: HIV INFECTION
     Dosage: 300 UNKNOWN, QD
     Route: 065
     Dates: start: 201407
  7. LAMIVUDINE. [Suspect]
     Active Substance: LAMIVUDINE
     Indication: HIV INFECTION
     Dosage: 300 UNKNOWN, QD
     Route: 065
     Dates: start: 20131202
  8. EFAVIRENZ [Suspect]
     Active Substance: EFAVIRENZ
     Indication: HIV INFECTION
     Dosage: 600 UNKNOWN, QD
     Route: 065
     Dates: start: 20100831
  9. EFAVIRENZ [Suspect]
     Active Substance: EFAVIRENZ
     Dosage: 600 UNKNOWN, QD
     Route: 065
     Dates: start: 2014

REACTIONS (1)
  - Hypercreatinaemia [Recovered/Resolved]

NARRATIVE: CASE EVENT DATE: 20140612
